FAERS Safety Report 10654958 (Version 1)
Quarter: 2014Q4

REPORT INFORMATION
  Report Type: Spontaneous
  Country: US (occurrence: US)
  Receive Date: 20141216
  Receipt Date: 20141216
  Transmission Date: 20150529
  Serious: No
  Sender: FDA-Public Use
  Company Number: US-PFIZER INC-2014345445

PATIENT
  Age: 67 Year
  Sex: Male
  Weight: 86 kg

DRUGS (2)
  1. ALEVE [Concomitant]
     Active Substance: NAPROXEN SODIUM
     Dosage: UNK
  2. CELEBREX [Suspect]
     Active Substance: CELECOXIB
     Dosage: 200 MG, (ONE OR TWO TIMES A WEEK)
     Route: 048
     Dates: start: 2008

REACTIONS (2)
  - Abdominal discomfort [Not Recovered/Not Resolved]
  - Product quality issue [Unknown]

NARRATIVE: CASE EVENT DATE: 20141031
